FAERS Safety Report 7509024-9 (Version None)
Quarter: 2011Q2

REPORT INFORMATION
  Report Type: 
  Country: None (occurrence: None)
  Receive Date: 20110527
  Receipt Date: 20110518
  Transmission Date: 20111010
  Serious: Yes (Hospitalization)
  Sender: FDA-Public Use
  Company Number: DE-TEVA-282332GER

PATIENT
  Age: 80 Year
  Sex: Male
  Weight: 75 kg

DRUGS (4)
  1. PREDNISOLONE [Suspect]
     Indication: MULTIPLE MYELOMA
     Dosage: 100 MILLIGRAM;
     Route: 048
     Dates: start: 20100101
  2. BORTEZOMIB [Suspect]
     Indication: MULTIPLE MYELOMA
     Dosage: 2.5 MILLIGRAM;
     Route: 042
     Dates: start: 20100101
  3. MELPHALAN HYDROCHLORIDE [Suspect]
     Indication: MULTIPLE MYELOMA
     Dosage: 28 MILLIGRAM;
     Route: 042
  4. MORPHINE [Suspect]
     Indication: PAIN
     Dosage: 80 MILLIGRAM;
     Route: 048

REACTIONS (1)
  - DIVERTICULITIS [None]
